FAERS Safety Report 12171036 (Version 2)
Quarter: 2016Q2

REPORT INFORMATION
  Report Type: Spontaneous
  Country: US (occurrence: US)
  Receive Date: 20160311
  Receipt Date: 20160625
  Transmission Date: 20160815
  Serious: No
  Sender: FDA-Public Use
  Company Number: US-ELI_LILLY_AND_COMPANY-US201602004538

PATIENT
  Age: 54 Year
  Sex: Male

DRUGS (8)
  1. CIALIS [Suspect]
     Active Substance: TADALAFIL
     Dosage: 10 UNK, UNK
     Route: 065
     Dates: start: 20160517
  2. AXIRON [Suspect]
     Active Substance: TESTOSTERONE
     Dosage: 120 MG, QD
     Route: 065
  3. CIALIS [Suspect]
     Active Substance: TADALAFIL
     Indication: ERECTILE DYSFUNCTION
     Dosage: 5 MG, QD
     Route: 065
  4. CIALIS [Suspect]
     Active Substance: TADALAFIL
     Dosage: 10 MG, EACH MORNING
     Route: 065
  5. TRAZODONE [Concomitant]
     Active Substance: TRAZODONE HYDROCHLORIDE
     Indication: SLEEP DISORDER
     Dosage: UNK, UNKNOWN
     Route: 065
  6. CIALIS [Suspect]
     Active Substance: TADALAFIL
     Dosage: 10 MG, EACH EVENING
  7. AXIRON [Suspect]
     Active Substance: TESTOSTERONE
     Indication: BLOOD TESTOSTERONE DECREASED
     Dosage: 90 MG, QD
     Route: 065
  8. AXIRON [Suspect]
     Active Substance: TESTOSTERONE
     Dosage: 90 UNK, UNK
     Route: 065

REACTIONS (14)
  - Palpitations [Unknown]
  - Drug withdrawal syndrome [Unknown]
  - Dizziness postural [Unknown]
  - Depressed mood [Unknown]
  - Urine flow decreased [Unknown]
  - Prostatic specific antigen increased [Unknown]
  - Intentional product misuse [Unknown]
  - Cough [Unknown]
  - Nocturnal dyspnoea [Unknown]
  - Incorrect dose administered [Unknown]
  - Secretion discharge [Unknown]
  - Sleep disorder [Unknown]
  - Choking [Unknown]
  - Wrong technique in product usage process [Unknown]

NARRATIVE: CASE EVENT DATE: 20160210
